FAERS Safety Report 20774574 (Version 3)
Quarter: 2023Q1

REPORT INFORMATION
  Report Type: Report from Study
  Country: AU (occurrence: AU)
  Receive Date: 20220502
  Receipt Date: 20230307
  Transmission Date: 20230418
  Serious: Yes (Congenital Anomaly)
  Sender: FDA-Public Use
  Company Number: AU-002147023-NVSC2022AU095916

PATIENT

DRUGS (1)
  1. ERENUMAB [Suspect]
     Active Substance: ERENUMAB
     Indication: Paternal exposure during pregnancy
     Dosage: UNK
     Route: 065

REACTIONS (2)
  - Haemangioma [Recovering/Resolving]
  - Paternal exposure during pregnancy [Unknown]
